FAERS Safety Report 5148763-4 (Version None)
Quarter: 2006Q4

REPORT INFORMATION
  Report Type: 
  Country: None (occurrence: None)
  Receive Date: 20061107
  Receipt Date: 20061024
  Transmission Date: 20070319
  Serious: Yes (Death)
  Sender: FDA-Public Use
  Company Number: 229583

PATIENT
  Age: 65 Year
  Sex: Male
  Weight: 90.7 kg

DRUGS (3)
  1. BEVACIZUMAB [Suspect]
     Indication: NON-SMALL CELL LUNG CANCER
     Dosage: 1370 MG, Q3W, INTRAVENOUS
     Route: 042
     Dates: start: 20060727, end: 20060817
  2. CARBOPLATIN [Suspect]
     Indication: NON-SMALL CELL LUNG CANCER
     Dosage: 490 MG, Q3W, INTRAVENOUS
     Route: 042
     Dates: start: 20060727, end: 20060817
  3. GEMCITABINE [Suspect]
     Indication: NON-SMALL CELL LUNG CANCER
     Dosage: 2100 MG, DAYS 1,
     Dates: start: 20060727, end: 20060824

REACTIONS (5)
  - COMPUTERISED TOMOGRAM ABNORMAL [None]
  - HAEMOPTYSIS [None]
  - LOSS OF CONSCIOUSNESS [None]
  - LUNG CONSOLIDATION [None]
  - NON-SMALL CELL LUNG CANCER [None]
